FAERS Safety Report 10330372 (Version 1)
Quarter: 2014Q3

REPORT INFORMATION
  Report Type: Report from Study
  Country: GB (occurrence: GB)
  Receive Date: 20140722
  Receipt Date: 20140722
  Transmission Date: 20150326
  Serious: Yes (Death)
  Sender: FDA-Public Use
  Company Number: GB-ROCHE-1438156

PATIENT
  Age: 71 Year
  Sex: Male

DRUGS (6)
  1. DEXAMETHASONE. [Concomitant]
     Active Substance: DEXAMETHASONE
     Indication: SMALL INTESTINE CARCINOMA
     Route: 048
     Dates: end: 20121227
  2. CAPECITABINE [Suspect]
     Active Substance: CAPECITABINE
     Indication: SMALL INTESTINE CARCINOMA
     Route: 048
     Dates: end: 20121227
  3. LOPERAMIDE [Concomitant]
     Active Substance: LOPERAMIDE
     Indication: SMALL INTESTINE CARCINOMA
     Route: 048
     Dates: end: 20121227
  4. ONDANSETRON [Concomitant]
     Active Substance: ONDANSETRON
     Indication: SMALL INTESTINE CARCINOMA
     Route: 048
     Dates: end: 20121227
  5. OXALIPLATIN. [Concomitant]
     Active Substance: OXALIPLATIN
     Indication: SMALL INTESTINE CARCINOMA
     Route: 042
     Dates: end: 20121227
  6. GLUCOSE 5% [Concomitant]
     Active Substance: DEXTROSE
     Indication: SMALL INTESTINE CARCINOMA
     Route: 042
     Dates: end: 20121227

REACTIONS (1)
  - Death [Fatal]
